FAERS Safety Report 6377296-2 (Version None)
Quarter: 2009Q3

REPORT INFORMATION
  Report Type: 
  Country: None (occurrence: None)
  Receive Date: 20090923
  Receipt Date: 20090923
  Transmission Date: 20100115
  Serious: No
  Sender: FDA-Public Use
  Company Number: None

PATIENT
  Age: 24 Year
  Sex: Female

DRUGS (3)
  1. HUMALOG [Suspect]
     Indication: TYPE 1 DIABETES MELLITUS
     Dosage: 22.55 UNITS/DAY IV
     Route: 042
  2. LEVOTHYROXINE SODIUM [Concomitant]
  3. CETIRIZINE HCL [Concomitant]

REACTIONS (5)
  - BLOOD GLUCOSE DECREASED [None]
  - HYPOPHAGIA [None]
  - IMPAIRED GASTRIC EMPTYING [None]
  - MENTAL STATUS CHANGES [None]
  - SMALL INTESTINAL OBSTRUCTION [None]
